FAERS Safety Report 19704023 (Version 6)
Quarter: 2021Q4

REPORT INFORMATION
  Report Type: Report from Study
  Country: US (occurrence: US)
  Receive Date: 20210816
  Receipt Date: 20211029
  Transmission Date: 20220303
  Serious: No
  Sender: FDA-Public Use
  Company Number: NVSC2021US180187

PATIENT
  Sex: Male

DRUGS (1)
  1. ENTRESTO [Suspect]
     Active Substance: SACUBITRIL\VALSARTAN
     Indication: Product used for unknown indication
     Dosage: 200 MG, BID (97/103 MG)
     Route: 048
     Dates: start: 20210805

REACTIONS (8)
  - Decreased activity [Unknown]
  - Dyspnoea [Not Recovered/Not Resolved]
  - Weight increased [Unknown]
  - Blood glucose increased [Recovering/Resolving]
  - Exercise tolerance decreased [Unknown]
  - Pain [Unknown]
  - Asthenia [Not Recovered/Not Resolved]
  - Fatigue [Unknown]
